FAERS Safety Report 19101311 (Version 1)
Quarter: 2021Q2

REPORT INFORMATION
  Report Type: Spontaneous
  Country: US (occurrence: US)
  Receive Date: 20210406
  Receipt Date: 20210406
  Transmission Date: 20210717
  Serious: No
  Sender: FDA-Public Use
  Company Number: None

PATIENT
  Age: 56 Year
  Sex: Female

DRUGS (9)
  1. DIVALPROEX [Concomitant]
     Active Substance: DIVALPROEX SODIUM
  2. PREDNISONE. [Concomitant]
     Active Substance: PREDNISONE
  3. VITAMIN D3 [Concomitant]
     Active Substance: CHOLECALCIFEROL
  4. FISH OIL [Concomitant]
     Active Substance: FISH OIL
  5. LEVOTHYROXIN [Concomitant]
     Active Substance: LEVOTHYROXINE
  6. GILENYA [Suspect]
     Active Substance: FINGOLIMOD HYDROCHLORIDE
     Indication: MULTIPLE SCLEROSIS
     Route: 048
     Dates: start: 20180222
  7. ZONISAMIDE. [Concomitant]
     Active Substance: ZONISAMIDE
  8. CALICUM [Concomitant]
  9. MULITPLE VITAMINS [Concomitant]

REACTIONS (6)
  - Diarrhoea [None]
  - Seizure [None]
  - Sepsis [None]
  - Nephrolithiasis [None]
  - Clostridium difficile infection [None]
  - Cystitis [None]

NARRATIVE: CASE EVENT DATE: 20210405
